FAERS Safety Report 22305854 (Version 1)
Quarter: 2023Q2

REPORT INFORMATION
  Report Type: Other
  Country: ZA (occurrence: ZA)
  Receive Date: 20230511
  Receipt Date: 20230511
  Transmission Date: 20230721
  Serious: Yes (Other)
  Sender: FDA-Public Use
  Company Number: ZA-MACLEODS PHARMA EU LTD-MAC2023041222

PATIENT

DRUGS (1)
  1. EMTRICITABINE\TENOFOVIR [Suspect]
     Active Substance: EMTRICITABINE\TENOFOVIR
     Indication: Prophylaxis against HIV infection
     Dosage: 500 MILLIGRAM, QD (PRIOR TO CONCEPTION, 1 NUMBER OF COURSE, EXPOSURE IN FIRST TRIMESTER, MANUFACTURE
     Route: 048
     Dates: start: 20190709

REACTIONS (3)
  - Abortion induced [Unknown]
  - Ectopic pregnancy [Unknown]
  - Maternal exposure during pregnancy [Unknown]

NARRATIVE: CASE EVENT DATE: 20191010
